FAERS Safety Report 14670542 (Version 1)
Quarter: 2018Q1

REPORT INFORMATION
  Report Type: Spontaneous
  Country: CA (occurrence: CA)
  Receive Date: 20180322
  Receipt Date: 20180322
  Transmission Date: 20180509
  Serious: Yes (Life-Threatening)
  Sender: FDA-Public Use
  Company Number: CA-BAYER-2018-051737

PATIENT
  Age: 40 Year
  Sex: Female
  Weight: 79 kg

DRUGS (3)
  1. MIRENA [Suspect]
     Active Substance: LEVONORGESTREL
     Indication: CONTRACEPTION
     Dosage: 20 MCG/24HR, CONT
     Route: 015
  2. MIRENA [Suspect]
     Active Substance: LEVONORGESTREL
     Indication: CONTRACEPTION
  3. VYVANSE [Concomitant]
     Active Substance: LISDEXAMFETAMINE DIMESYLATE
     Dosage: UNK

REACTIONS (18)
  - Arthralgia [Recovering/Resolving]
  - Depressed mood [Recovering/Resolving]
  - Loss of libido [Recovering/Resolving]
  - Vertigo [Recovering/Resolving]
  - Aggression [Recovering/Resolving]
  - Hypoaesthesia [Recovering/Resolving]
  - Fungal infection [Recovering/Resolving]
  - Anxiety [Recovering/Resolving]
  - Insomnia [Recovering/Resolving]
  - Suicidal ideation [Recovering/Resolving]
  - Bacterial vaginosis [Recovering/Resolving]
  - Amnesia [Recovering/Resolving]
  - Depression [Recovering/Resolving]
  - Disturbance in attention [Recovering/Resolving]
  - Dyspareunia [Recovering/Resolving]
  - Pain in extremity [Recovering/Resolving]
  - Speech disorder [Recovering/Resolving]
  - Uterine pain [Recovering/Resolving]
